FAERS Safety Report 23934242 (Version 1)
Quarter: 2024Q2

REPORT INFORMATION
  Report Type: Spontaneous
  Country: US (occurrence: US)
  Receive Date: 20240603
  Receipt Date: 20240603
  Transmission Date: 20240716
  Serious: No
  Sender: FDA-Public Use
  Company Number: US-ABBVIE-5786396

PATIENT
  Sex: Female

DRUGS (2)
  1. UBRELVY [Suspect]
     Active Substance: UBROGEPANT
     Indication: Migraine
     Dosage: TIME INTERVAL: AS NECESSARY
     Route: 048
  2. TOPAMAX [Concomitant]
     Active Substance: TOPIRAMATE
     Indication: Product used for unknown indication

REACTIONS (3)
  - Pain [Unknown]
  - Nervous system disorder [Unknown]
  - Road traffic accident [Unknown]
